FAERS Safety Report 9528385 (Version 1)
Quarter: 2013Q3

REPORT INFORMATION
  Report Type: Spontaneous
  Country: NO (occurrence: NO)
  Receive Date: 20130917
  Receipt Date: 20130917
  Transmission Date: 20140515
  Serious: Yes (Other)
  Sender: FDA-Public Use
  Company Number: NO-ASTELLAS-2013EU007815

PATIENT
  Sex: Female

DRUGS (2)
  1. BETMIGA [Suspect]
     Dosage: 50 MG, UNKNOWN/D
     Route: 065
  2. ORAL CONTRACEPTIVE NOS [Concomitant]
     Indication: MENSTRUAL DISORDER
     Dosage: UNK
     Route: 065

REACTIONS (1)
  - Amenorrhoea [Unknown]
